FAERS Safety Report 19587238 (Version 1)
Quarter: 2021Q3

REPORT INFORMATION
  Report Type: Spontaneous
  Country: US (occurrence: US)
  Receive Date: 20210720
  Receipt Date: 20210720
  Transmission Date: 20211014
  Serious: Yes (Hospitalization)
  Sender: FDA-Public Use
  Company Number: None

PATIENT
  Sex: Male
  Weight: 135 kg

DRUGS (9)
  1. CEFADROXIL. [Concomitant]
     Active Substance: CEFADROXIL
  2. ELIQUIS [Concomitant]
     Active Substance: APIXABAN
  3. OMEPRAZOLE. [Concomitant]
     Active Substance: OMEPRAZOLE
  4. GABAPENTIN. [Concomitant]
     Active Substance: GABAPENTIN
  5. HYDROMORPHONE [Concomitant]
     Active Substance: HYDROMORPHONE
  6. TASIGNA [Suspect]
     Active Substance: NILOTINIB
     Indication: CHRONIC MYELOID LEUKAEMIA
     Route: 048
  7. CLONAZEPAM. [Concomitant]
     Active Substance: CLONAZEPAM
  8. OTEZLA [Concomitant]
     Active Substance: APREMILAST
  9. FUROSEMIDE. [Concomitant]
     Active Substance: FUROSEMIDE

REACTIONS (1)
  - Hospitalisation [None]
